FAERS Safety Report 5875907-9 (Version None)
Quarter: 2008Q3

REPORT INFORMATION
  Report Type: 
  Country: None (occurrence: None)
  Receive Date: 20080910
  Receipt Date: 20080902
  Transmission Date: 20090109
  Serious: Yes (Hospitalization)
  Sender: FDA-Public Use
  Company Number: PHEH2008US07857

PATIENT
  Sex: Female

DRUGS (1)
  1. EXELON [Suspect]
     Dosage: 9.5 MG, QD
     Route: 062

REACTIONS (3)
  - DEHYDRATION [None]
  - ELECTROLYTE IMBALANCE [None]
  - VOMITING [None]
